FAERS Safety Report 9420843 (Version 1)
Quarter: 2013Q3

REPORT INFORMATION
  Report Type: Spontaneous
  Country: US (occurrence: US)
  Receive Date: 20130725
  Receipt Date: 20130725
  Transmission Date: 20140515
  Serious: No
  Sender: FDA-Public Use
  Company Number: US-ABBOTT-13P-163-1073583-00

PATIENT
  Age: 44 Year
  Sex: Female
  Weight: 91.71 kg

DRUGS (7)
  1. SYNTHROID [Suspect]
     Indication: HYPOTHYROIDISM
     Dosage: APPROXIMATELY 3-6 MONTHS
     Dates: start: 2012, end: 20130315
  2. SYNTHROID [Suspect]
     Dates: start: 20130316
  3. SYNTHROID [Suspect]
     Dates: start: 2007, end: 2013
  4. LOESTRIN [Concomitant]
     Indication: CONTRACEPTION
  5. DIAZEPAM [Concomitant]
     Indication: ANXIETY
  6. TYLENOL [Concomitant]
     Indication: HEADACHE
  7. FLEXERIL [Concomitant]
     Indication: MYALGIA

REACTIONS (7)
  - Peripheral coldness [Recovered/Resolved]
  - Alopecia [Recovered/Resolved]
  - Drug ineffective [Recovered/Resolved]
  - Fatigue [Recovered/Resolved]
  - Hypothyroidism [Unknown]
  - Nervousness [Recovered/Resolved]
  - Heart rate increased [Recovered/Resolved]
